FAERS Safety Report 8184768-7 (Version None)
Quarter: 2012Q1

REPORT INFORMATION
  Report Type: 
  Country: None (occurrence: None)
  Receive Date: 20120305
  Receipt Date: 20120305
  Transmission Date: 20120608
  Serious: Yes (Other)
  Sender: FDA-Public Use
  Company Number: None

PATIENT
  Age: 67 Year
  Sex: Male
  Weight: 72.574 kg

DRUGS (1)
  1. OXYCODONE HCL AND ACETAMINOPHEN [Suspect]
     Indication: PROCEDURAL PAIN
     Dosage: 1-2 TABLETS BY MOUTH
     Route: 048
     Dates: start: 20120302, end: 20120303

REACTIONS (1)
  - OESOPHAGEAL STENOSIS [None]
